FAERS Safety Report 7355843-1 (Version None)
Quarter: 2011Q1

REPORT INFORMATION
  Report Type: 
  Country: None (occurrence: None)
  Receive Date: 20110316
  Receipt Date: 20110314
  Transmission Date: 20110831
  Serious: Yes (Hospitalization, Other)
  Sender: FDA-Public Use
  Company Number: AU-BRISTOL-MYERS SQUIBB COMPANY-15324965

PATIENT
  Age: 60 Year
  Sex: Female
  Weight: 57 kg

DRUGS (14)
  1. MIRTAZAPINE [Concomitant]
     Indication: INSOMNIA
     Dosage: 15MG. JUL10-22AUG10(1MONTH), 09SEP10-UNK
     Dates: start: 20100823
  2. MOVIPREP [Concomitant]
     Indication: CONSTIPATION
     Dosage: 1 DF=1SACHET
     Dates: start: 20100601
  3. TEMAZEPAM [Concomitant]
     Indication: INSOMNIA
     Dosage: ONGOING
     Dates: start: 20100701
  4. DICLOXACILLIN [Concomitant]
     Indication: INFECTION PROPHYLAXIS
  5. PACLITAXEL [Suspect]
     Indication: NON-SMALL CELL LUNG CANCER
     Dosage: INTERRUPTED ON 13SEP10.200MG/M2 ON 11JUN10+ 30JUN10. 168MG/M2 ON 28JUL10,25AUG10.
     Route: 042
     Dates: start: 20100611, end: 20100825
  6. PARACETAMOL [Concomitant]
     Indication: PAIN
     Dates: start: 20100608
  7. CARBOPLATIN [Suspect]
     Indication: NON-SMALL CELL LUNG CANCER
     Dosage: INTERRUPTED ON 13SEP10.1DF=AUC 6 MG/ML/MIN (11JUN10,30JUN10,28JUL10,25AUG10)
     Route: 042
     Dates: start: 20100611, end: 20100825
  8. OXYCODONE [Concomitant]
     Indication: PAIN
     Dosage: ONGOING
     Dates: start: 20100608, end: 20101005
  9. OXYCONTIN [Concomitant]
     Indication: PAIN
     Dosage: ONGOING
     Dates: start: 20100610, end: 20101005
  10. METOCLOPRAMIDE HCL [Concomitant]
     Indication: NAUSEA
     Dates: start: 20100608
  11. BICARB [Concomitant]
     Indication: PROPHYLAXIS
     Dosage: BICARBONATE SODA MOUTHWASH
     Dates: start: 20100612, end: 20100916
  12. OXAZEPAM [Concomitant]
     Indication: INSOMNIA
     Dates: start: 20100611
  13. DIFFLAM [Concomitant]
     Indication: MUCOSAL INFLAMMATION
     Dosage: MOUTHWASH
     Dates: start: 20100810, end: 20100825
  14. SODIUM BICARBONATE [Concomitant]
     Indication: MUCOSAL INFLAMMATION
     Dosage: BICARB SODA MOUTH WASH
     Dates: start: 20100612, end: 20100916

REACTIONS (1)
  - PYODERMA GANGRENOSUM [None]
